FAERS Safety Report 10902017 (Version 1)
Quarter: 2015Q1

REPORT INFORMATION
  Report Type: Spontaneous
  Country: US (occurrence: US)
  Receive Date: 20150310
  Receipt Date: 20150310
  Transmission Date: 20150721
  Serious: Yes (Other)
  Sender: FDA-Public Use
  Company Number: US-BAYER-2015-034247

PATIENT
  Sex: Female

DRUGS (3)
  1. AVONEX [Suspect]
     Active Substance: INTERFERON BETA-1A
  2. BETASERON [Suspect]
     Active Substance: INTERFERON BETA-1B
  3. COPAXONE [Suspect]
     Active Substance: GLATIRAMER ACETATE

REACTIONS (6)
  - Suicidal ideation [None]
  - Speech disorder [None]
  - Depression [None]
  - Condition aggravated [None]
  - Central nervous system lesion [None]
  - Amnesia [None]
